FAERS Safety Report 17250179 (Version 1)
Quarter: 2020Q1

REPORT INFORMATION
  Report Type: Spontaneous
  Country: FR (occurrence: FR)
  Receive Date: 20200109
  Receipt Date: 20200109
  Transmission Date: 20200409
  Serious: Yes (Congenital Anomaly, Other)
  Sender: FDA-Public Use
  Company Number: FR-TEVA-2020-FR-1163844

PATIENT
  Age: 56 Year
  Sex: Female

DRUGS (1)
  1. DULOXETINE BASE [Suspect]
     Active Substance: DULOXETINE
     Indication: NERVOUS SYSTEM DISORDER
     Dosage: UNINFORMED
     Route: 048

REACTIONS (2)
  - Macroglossia [Not Recovered/Not Resolved]
  - Tongue discolouration [Not Recovered/Not Resolved]
